FAERS Safety Report 9353828 (Version 3)
Quarter: 2013Q3

REPORT INFORMATION
  Report Type: Spontaneous
  Country: US (occurrence: US)
  Receive Date: 20130618
  Receipt Date: 20130823
  Transmission Date: 20140515
  Serious: Yes (Hospitalization)
  Sender: FDA-Public Use
  Company Number: US-BAXTER-2013BAX021960

PATIENT
  Age: 74 Year
  Sex: Female

DRUGS (2)
  1. DIANEAL LOW CALCIUM [Suspect]
     Indication: PERITONEAL DIALYSIS
     Route: 033
     Dates: end: 201308
  2. DIANEAL LOW CALCIUM [Suspect]
     Indication: PERITONEAL DIALYSIS
     Route: 033
     Dates: start: 201304

REACTIONS (5)
  - Cerebrovascular accident [Recovering/Resolving]
  - Blood pressure systolic increased [Recovering/Resolving]
  - Convulsion [Recovered/Resolved]
  - Asthenia [Recovering/Resolving]
  - Dehydration [Recovered/Resolved]
